FAERS Safety Report 7458637-1 (Version None)
Quarter: 2011Q2

REPORT INFORMATION
  Report Type: 
  Country: None (occurrence: None)
  Receive Date: 20110504
  Receipt Date: 20110424
  Transmission Date: 20111010
  Serious: Yes (Hospitalization)
  Sender: FDA-Public Use
  Company Number: JP-BAXTER-2011BH013016

PATIENT
  Age: 78 Year
  Sex: Male

DRUGS (2)
  1. DIANEAL PD-2 W/ DEXTROSE 1.5% [Suspect]
     Indication: RENAL FAILURE CHRONIC
     Route: 033
     Dates: start: 20070129
  2. EXTRANEAL [Suspect]
     Indication: RENAL FAILURE CHRONIC
     Route: 033
     Dates: start: 20070129

REACTIONS (1)
  - LYMPHOMA [None]
